FAERS Safety Report 20776077 (Version 2)
Quarter: 2022Q3

REPORT INFORMATION
  Report Type: Spontaneous
  Country: US (occurrence: US)
  Receive Date: 20220502
  Receipt Date: 20220816
  Transmission Date: 20221027
  Serious: No
  Sender: FDA-Public Use
  Company Number: US-NOVARTISTESTPH-NVSC2022US100351

PATIENT
  Age: 30 Year
  Sex: Male

DRUGS (1)
  1. KESIMPTA [Suspect]
     Active Substance: OFATUMUMAB
     Indication: Relapsing multiple sclerosis
     Dosage: 20 MG (LOADING DOSE AT 1, 7, 14 AND THEN MONTHLY)
     Route: 058

REACTIONS (3)
  - Pain [Unknown]
  - Palpitations [Unknown]
  - Drug hypersensitivity [Recovered/Resolved]
